FAERS Safety Report 6021080-6 (Version None)
Quarter: 2008Q4

REPORT INFORMATION
  Report Type: 
  Country: None (occurrence: None)
  Receive Date: 20081229
  Receipt Date: 20081215
  Transmission Date: 20090506
  Serious: Yes (Death)
  Sender: FDA-Public Use
  Company Number: US-PFIZER INC-2008153484

PATIENT
  Age: 50 Year
  Sex: Male

DRUGS (9)
  1. ATORVASTATIN CALCIUM [Suspect]
     Dosage: UNK
  2. LISINOPRIL [Suspect]
     Dosage: UNK
  3. IBUPROFEN TABLETS [Suspect]
  4. NAPROXEN AND NAPROXEN SODIUM [Suspect]
  5. FEXOFENADINE HCL AND PSEUDOEPHEDRINE HCL [Suspect]
  6. METOPROLOL [Suspect]
  7. CLOPIDOGREL [Suspect]
  8. ALLOPURINOL [Suspect]
  9. MELOXICAM [Suspect]

REACTIONS (1)
  - COMPLETED SUICIDE [None]
